FAERS Safety Report 6234397-7 (Version None)
Quarter: 2009Q2

REPORT INFORMATION
  Report Type: 
  Country: None (occurrence: None)
  Receive Date: 20090618
  Receipt Date: 20090611
  Transmission Date: 20091009
  Serious: Yes (Other)
  Sender: FDA-Public Use
  Company Number: US-ROCHE-623117

PATIENT
  Sex: Male

DRUGS (3)
  1. PEGASYS [Suspect]
     Route: 058
     Dates: start: 20060601, end: 20070501
  2. COPEGUS [Suspect]
     Route: 048
     Dates: start: 20060601, end: 20070501
  3. FACTOR VIII [Concomitant]

REACTIONS (2)
  - HYPOTHYROIDISM [None]
  - THYROID CANCER [None]
